FAERS Safety Report 9128068 (Version 1)
Quarter: 2013Q1

REPORT INFORMATION
  Report Type: Spontaneous
  Country: SE (occurrence: SE)
  Receive Date: 20130228
  Receipt Date: 20130228
  Transmission Date: 20140127
  Serious: Yes (Hospitalization, Other)
  Sender: FDA-Public Use
  Company Number: SE-PFIZER INC-2013070198

PATIENT
  Age: 57 Year
  Sex: Male

DRUGS (14)
  1. LYRICA [Suspect]
     Dosage: 75 MG, UNK
     Dates: start: 20121215, end: 20130208
  2. TRADIL [Concomitant]
     Dosage: UNK
  3. OMEPRAZOL [Concomitant]
     Dosage: UNK
  4. MELATONIN [Concomitant]
     Dosage: UNK
  5. MIRTAZAPINE [Concomitant]
     Dosage: UNK
  6. ATARAX [Concomitant]
     Dosage: UNK
  7. LERGIGAN [Concomitant]
     Dosage: UNK
  8. PANODIL [Concomitant]
     Dosage: UNK
  9. PROPAVAN [Concomitant]
     Dosage: UNK
  10. NOZINAN [Concomitant]
     Dosage: UNK
  11. PRONAXEN [Concomitant]
     Dosage: UNK
  12. XANOR - SLOW RELEASE [Concomitant]
     Dosage: UNK
  13. VISCOTEARS [Concomitant]
     Dosage: UNK
  14. DEXAMETHASONE SODIUM PHOSPHATE [Concomitant]
     Dosage: UNK

REACTIONS (2)
  - Drug tolerance increased [Recovered/Resolved]
  - Drug abuse [Unknown]
